FAERS Safety Report 16403540 (Version 1)
Quarter: 2019Q2

REPORT INFORMATION
  Report Type: Spontaneous
  Country: US (occurrence: US)
  Receive Date: 20190501
  Receipt Date: 20190501
  Transmission Date: 20190711
  Serious: No
  Sender: FDA-Public Use
  Company Number: None

PATIENT
  Age: 42 Year
  Sex: Female

DRUGS (1)
  1. MYCOPHENOLATE MOFETIL TABLET 500MG [Suspect]
     Active Substance: MYCOPHENOLATE MOFETIL
     Dates: start: 201901

REACTIONS (2)
  - Product dose omission [None]
  - Insurance issue [None]

NARRATIVE: CASE EVENT DATE: 20190501
